FAERS Safety Report 6427460-9 (Version None)
Quarter: 2009Q4

REPORT INFORMATION
  Report Type: 
  Country: None (occurrence: None)
  Receive Date: 20091030
  Receipt Date: 20091012
  Transmission Date: 20100525
  Serious: No
  Sender: FDA-Public Use
  Company Number: 1-20301729

PATIENT
  Age: 16 Month
  Sex: Male
  Weight: 12.2471 kg

DRUGS (1)
  1. TRIPLE ANTIBIOTIC OINTMENT [Suspect]
     Indication: FACE INJURY
     Dosage: UNK, UNK, TOPICAL
     Route: 061
     Dates: start: 20091001

REACTIONS (3)
  - LIP SWELLING [None]
  - RASH MACULAR [None]
  - SWELLING FACE [None]
